FAERS Safety Report 5896982-1 (Version None)
Quarter: 2008Q3

REPORT INFORMATION
  Report Type: 
  Country: None (occurrence: None)
  Receive Date: 20080924
  Receipt Date: 20080703
  Transmission Date: 20090109
  Serious: Yes (Hospitalization)
  Sender: FDA-Public Use
  Company Number: US-ASTRAZENECA-2008UW01681

PATIENT
  Age: 49 Year
  Sex: Female
  Weight: 98.9 kg

DRUGS (8)
  1. SEROQUEL [Suspect]
     Indication: BIPOLAR DISORDER
     Dosage: INCLUDING BUT NOT LIMITED TO 25 MG, 100 MG, + 200MG
     Route: 048
     Dates: start: 20020715
  2. SEROQUEL [Suspect]
     Indication: BIPOLAR I DISORDER
     Dosage: INCLUDING BUT NOT LIMITED TO 25 MG, 100 MG, + 200MG
     Route: 048
     Dates: start: 20020715
  3. ABILIFY [Concomitant]
     Dates: start: 20040101, end: 20060101
  4. HALDOL [Concomitant]
     Dates: start: 19800101
  5. TOPAMAX [Concomitant]
     Dates: start: 20070101
  6. PAXIL [Concomitant]
     Dates: start: 20020101
  7. LEXAPRO [Concomitant]
  8. TRAZODONE HCL [Concomitant]
     Dates: start: 20040101

REACTIONS (3)
  - CONVULSION [None]
  - DIABETES MELLITUS [None]
  - OBESITY [None]
